FAERS Safety Report 17464265 (Version 1)
Quarter: 2020Q1

REPORT INFORMATION
  Report Type: Spontaneous
  Country: US (occurrence: US)
  Receive Date: 20200226
  Receipt Date: 20200226
  Transmission Date: 20200409
  Serious: Yes (Death, Hospitalization)
  Sender: FDA-Public Use
  Company Number: US-MYLANLABS-2020M1021024

PATIENT
  Age: 37 Year
  Sex: Male

DRUGS (8)
  1. AMIODARONE [Suspect]
     Active Substance: AMIODARONE
     Indication: PULSELESS ELECTRICAL ACTIVITY
     Dosage: UNK
     Route: 065
  2. EPINEPHRINE. [Suspect]
     Active Substance: EPINEPHRINE
     Indication: PULSELESS ELECTRICAL ACTIVITY
     Dosage: UNK
     Route: 065
  3. BICARBONATE [Suspect]
     Active Substance: SODIUM BICARBONATE
     Indication: PULSELESS ELECTRICAL ACTIVITY
     Dosage: UNK
     Route: 065
  4. LORAZEPAM. [Suspect]
     Active Substance: LORAZEPAM
     Indication: STATUS EPILEPTICUS
     Dosage: UNK
     Route: 065
  5. PROPOFOL. [Suspect]
     Active Substance: PROPOFOL
     Indication: STATUS EPILEPTICUS
     Dosage: UNK
     Route: 065
  6. DEXTROSE. [Concomitant]
     Active Substance: DEXTROSE
     Indication: PULSELESS ELECTRICAL ACTIVITY
     Dosage: UNK
     Route: 065
  7. CALCIUM [Suspect]
     Active Substance: CALCIUM
     Indication: PULSELESS ELECTRICAL ACTIVITY
     Dosage: UNK
     Route: 065
  8. FOSPHENYTOIN [Suspect]
     Active Substance: FOSPHENYTOIN
     Indication: STATUS EPILEPTICUS
     Dosage: UNK
     Route: 065

REACTIONS (1)
  - Drug ineffective [Fatal]
